FAERS Safety Report 9427940 (Version 1)
Quarter: 2013Q3

REPORT INFORMATION
  Report Type: Spontaneous
  Country: US (occurrence: US)
  Receive Date: 20130730
  Receipt Date: 20130730
  Transmission Date: 20140515
  Serious: No
  Sender: FDA-Public Use
  Company Number: US-ABBOTT-12P-163-0999594-00

PATIENT
  Sex: Female
  Weight: 86.26 kg

DRUGS (4)
  1. NIASPAN (COATED) [Suspect]
     Indication: HIGH DENSITY LIPOPROTEIN DECREASED
     Dates: start: 201209
  2. LISINOPRIL [Concomitant]
  3. TERAZOSIN [Concomitant]
     Indication: HYPERTENSION
  4. UNKNOWN PROGESTERONE PILL [Concomitant]
     Indication: INSOMNIA

REACTIONS (2)
  - Hot flush [Not Recovered/Not Resolved]
  - Insomnia [Not Recovered/Not Resolved]
